FAERS Safety Report 6379368-5 (Version None)
Quarter: 2009Q3

REPORT INFORMATION
  Report Type: 
  Country: None (occurrence: None)
  Receive Date: 20090923
  Receipt Date: 20090923
  Transmission Date: 20100115
  Serious: No
  Sender: FDA-Public Use
  Company Number: None

PATIENT
  Age: 55 Year
  Sex: Male
  Weight: 98.6 kg

DRUGS (11)
  1. GLARGINE INSULIN [Suspect]
     Indication: TYPE 1 DIABETES MELLITUS
     Dosage: 60 UNITS
     Dates: start: 20081114, end: 20081117
  2. ASPART [Suspect]
     Dosage: SSI 2 UNITS POST PRENATAL 30 UNITS
     Dates: start: 20081114, end: 20081117
  3. ENOXAPARIN SODIUM [Concomitant]
  4. ASPIRIN [Concomitant]
  5. CARVEDILOL [Concomitant]
  6. ATORVASTATIN [Concomitant]
  7. CLOPIDOGREL [Concomitant]
  8. ENALAPRIL MALEATE [Concomitant]
  9. LANSIPRAZOLE [Concomitant]
  10. MAG OX [Concomitant]
  11. MORPHINE [Concomitant]

REACTIONS (5)
  - BLOOD GLUCOSE DECREASED [None]
  - BLOOD GLUCOSE INCREASED [None]
  - COLD SWEAT [None]
  - HYPERHIDROSIS [None]
  - LETHARGY [None]
